FAERS Safety Report 5947108-7 (Version None)
Quarter: 2008Q4

REPORT INFORMATION
  Report Type: 
  Country: None (occurrence: None)
  Receive Date: 20081110
  Receipt Date: 20081104
  Transmission Date: 20090506
  Serious: Yes (Death)
  Sender: FDA-Public Use
  Company Number: TW-ABBOTT-08P-153-0485544-00

PATIENT

DRUGS (2)
  1. DEPAKENE [Suspect]
     Indication: EPILEPSY
     Dates: start: 20061202
  2. TEICOPLANIN [Suspect]
     Indication: STAPHYLOCOCCAL INFECTION
     Route: 042
     Dates: start: 20061215

REACTIONS (2)
  - SEPTIC SHOCK [None]
  - TOXIC EPIDERMAL NECROLYSIS [None]
